FAERS Safety Report 23423061 (Version 6)
Quarter: 2024Q2

REPORT INFORMATION
  Report Type: Spontaneous
  Country: US (occurrence: None)
  Receive Date: 20240119
  Receipt Date: 20240520
  Transmission Date: 20240715
  Serious: Yes (Hospitalization, Other)
  Sender: FDA-Public Use
  Company Number: US-FARMAPROD-202401-0086

PATIENT
  Age: 68 Year
  Sex: Female

DRUGS (35)
  1. OXERVATE [Suspect]
     Active Substance: CENEGERMIN-BKBJ
     Indication: Neurotrophic keratopathy
     Route: 047
     Dates: start: 20231228
  2. STRENSIQ [Concomitant]
     Active Substance: ASFOTASE ALFA
     Dosage: 28 MG / 0.7 ML VIAL
  3. MAGNESIUM [Concomitant]
     Active Substance: MAGNESIUM
  4. VITAMIN D2 [Concomitant]
     Active Substance: ERGOCALCIFEROL
  5. POTASSIUM [Concomitant]
     Active Substance: POTASSIUM
     Dosage: 595 (99)  MG
  6. CYCLOSPORINE [Concomitant]
     Active Substance: CYCLOSPORINE
  7. NITROGLYCERIN [Concomitant]
     Active Substance: NITROGLYCERIN
  8. SYNTHROID [Concomitant]
     Active Substance: LEVOTHYROXINE SODIUM
  9. PLAVIX [Concomitant]
     Active Substance: CLOPIDOGREL BISULFATE
  10. CIPROFLOXACIN HYDROCHLORIDE [Concomitant]
     Active Substance: CIPROFLOXACIN HYDROCHLORIDE
  11. NITROFURANTOIN MONOHYDRATE MACROCRYSTALS [Concomitant]
     Active Substance: NITROFURANTOIN\NITROFURANTOIN MONOHYDRATE
  12. IBUPROFEN [Concomitant]
     Active Substance: IBUPROFEN
  13. ASPIRIN [Concomitant]
     Active Substance: ASPIRIN
  14. ALLER-EASE [Concomitant]
  15. SUCRALFATE [Concomitant]
     Active Substance: SUCRALFATE
  16. CLOPIDOGREL [Concomitant]
     Active Substance: CLOPIDOGREL BISULFATE
  17. CEPHALEXIN [Concomitant]
     Active Substance: CEPHALEXIN
  18. LINZESS [Concomitant]
     Active Substance: LINACLOTIDE
  19. TRAMADOL HCL [Concomitant]
     Active Substance: TRAMADOL HYDROCHLORIDE
  20. VITAMIN D3 [Concomitant]
     Active Substance: CHOLECALCIFEROL
  21. METHOCARBAMOL [Concomitant]
     Active Substance: METHOCARBAMOL
  22. ONDANSETRON HYDROCHLORIDE [Concomitant]
     Active Substance: ONDANSETRON HYDROCHLORIDE
  23. DICYCLOMINE [Concomitant]
     Active Substance: DICYCLOMINE HYDROCHLORIDE
  24. SPIRONOLACTONE [Concomitant]
     Active Substance: SPIRONOLACTONE
  25. AMITRIPTYLINE HYDROCHLORIDE [Concomitant]
     Active Substance: AMITRIPTYLINE HYDROCHLORIDE
  26. LEVOTHYROXINE SODIUM [Concomitant]
     Active Substance: LEVOTHYROXINE SODIUM
  27. ONDANSETRON HYDROCHLORIDE [Concomitant]
     Active Substance: ONDANSETRON HYDROCHLORIDE
  28. COENZYME Q10 [Concomitant]
     Active Substance: DIETARY SUPPLEMENT\UBIDECARENONE
  29. LIDOCAINE\PRILOCAINE [Concomitant]
     Active Substance: LIDOCAINE\PRILOCAINE
  30. CARVEDILOL [Concomitant]
     Active Substance: CARVEDILOL
  31. PREDNISONE [Concomitant]
     Active Substance: PREDNISONE
  32. FLUCONAZOLE [Concomitant]
     Active Substance: FLUCONAZOLE
  33. FLUCONAZOLE [Concomitant]
     Active Substance: FLUCONAZOLE
  34. AZITHROMYCIN [Concomitant]
     Active Substance: AZITHROMYCIN
  35. ACETAMINOPHEN\HYDROCODONE [Concomitant]
     Active Substance: ACETAMINOPHEN\HYDROCODONE

REACTIONS (20)
  - Pneumonia [Unknown]
  - Respiratory disorder [Unknown]
  - Cardiac disorder [Unknown]
  - Sinus congestion [Unknown]
  - Cough [Unknown]
  - Dyspnoea [Unknown]
  - Vomiting [Unknown]
  - Malaise [Unknown]
  - Dizziness [Unknown]
  - Hypotension [Unknown]
  - Breast pain [Unknown]
  - Road traffic accident [Unknown]
  - Back pain [Unknown]
  - Neck injury [Unknown]
  - Fall [Unknown]
  - Product dose omission issue [Unknown]
  - Therapy interrupted [Unknown]
  - Eye swelling [Unknown]
  - Eye pain [Recovered/Resolved]
  - Intentional product misuse [Unknown]

NARRATIVE: CASE EVENT DATE: 20240101
